FAERS Safety Report 9908697 (Version 1)
Quarter: 2014Q1

REPORT INFORMATION
  Report Type: Spontaneous
  Country: US (occurrence: US)
  Receive Date: 20140219
  Receipt Date: 20140219
  Transmission Date: 20141002
  Serious: No
  Sender: FDA-Public Use
  Company Number: US-PFIZER INC-2014044889

PATIENT
  Age: 18 Year
  Sex: Female

DRUGS (2)
  1. ADVIL [Suspect]
     Indication: OROPHARYNGEAL PAIN
     Dosage: UNK, FIRST TIME IT WAS 800 MG (200 MG X 4 TABLETS) AND SECOND TIME IT WAS UNKNOWN DOSE, TWO TIMES A
     Route: 048
     Dates: start: 20140215
  2. ADVIL [Suspect]
     Indication: PHARYNGEAL OEDEMA

REACTIONS (2)
  - Pain [Not Recovered/Not Resolved]
  - Dizziness [Not Recovered/Not Resolved]
